FAERS Safety Report 8530809-4 (Version None)
Quarter: 2012Q3

REPORT INFORMATION
  Report Type: 
  Country: None (occurrence: None)
  Receive Date: 20120723
  Receipt Date: 20120719
  Transmission Date: 20120928
  Serious: Yes (Life-Threatening, Hospitalization)
  Sender: FDA-Public Use
  Company Number: GB-PFIZER INC-2011084010

PATIENT
  Age: 65 Year
  Sex: Female

DRUGS (7)
  1. FOLIC ACID [Concomitant]
     Dosage: 400 MG, UNK
     Route: 048
  2. LANSOPRAZOLE [Concomitant]
     Dosage: 30 MG, UNK
     Route: 048
  3. PEMETREXED [Suspect]
     Dosage: 875 MG, UNK
     Route: 042
     Dates: start: 20110405, end: 20110405
  4. CIPROFLOXACIN [Concomitant]
     Dosage: 250 MG, 2X/DAY
     Route: 048
     Dates: start: 20110401
  5. DALTEPARIN SODIUM [Suspect]
     Indication: LUNG NEOPLASM MALIGNANT
     Dosage: 5000 IU, 1X/DAY
     Route: 058
     Dates: start: 20110406, end: 20110415
  6. CISPLATIN [Suspect]
     Dosage: 132 MG, UNK
     Route: 042
     Dates: start: 20110405, end: 20110405
  7. DOMPERIDONE [Concomitant]
     Dosage: 20 MG, 3X/DAY
     Route: 048
     Dates: start: 20110401

REACTIONS (3)
  - SEPSIS [None]
  - HYPOTENSION [None]
  - PYREXIA [None]
